FAERS Safety Report 10206474 (Version 1)
Quarter: 2014Q2

REPORT INFORMATION
  Report Type: Spontaneous
  Country: IE (occurrence: IE)
  Receive Date: 20140530
  Receipt Date: 20140530
  Transmission Date: 20141212
  Serious: Yes (Death)
  Sender: FDA-Public Use
  Company Number: IE-AMGEN INC.-IRLSP2014039616

PATIENT
  Age: 52 Year
  Sex: Female

DRUGS (6)
  1. NEULASTA [Suspect]
     Indication: BREAST CANCER METASTATIC
     Dosage: 6MG/0.6MLS, POST CHEMOTHERAPY MONTHLY
     Route: 058
     Dates: start: 20101111
  2. MOTILIUM                           /00498201/ [Concomitant]
     Dosage: UNK
  3. DEXAMETHASONE [Concomitant]
     Dosage: UNK
  4. ZOFRAN                             /00955301/ [Concomitant]
     Dosage: UNK
  5. CALCICHEW [Concomitant]
     Dosage: UNK
  6. ATIVAN [Concomitant]
     Dosage: UNK

REACTIONS (1)
  - Death [Fatal]
